FAERS Safety Report 11247079 (Version 1)
Quarter: 2015Q3

REPORT INFORMATION
  Report Type: Spontaneous
  Country: US (occurrence: US)
  Receive Date: 20150708
  Receipt Date: 20150708
  Transmission Date: 20151125
  Serious: No
  Sender: FDA-Public Use
  Company Number: US-PFIZER INC-2015221147

PATIENT
  Age: 81 Year
  Sex: Male
  Weight: 99 kg

DRUGS (1)
  1. LYRICA [Suspect]
     Active Substance: PREGABALIN
     Indication: DIABETIC NEUROPATHY
     Dosage: 75 MG, 3X/DAY
     Route: 048
     Dates: start: 20150627

REACTIONS (2)
  - Somnolence [Not Recovered/Not Resolved]
  - Poor quality sleep [Not Recovered/Not Resolved]
